FAERS Safety Report 24913894 (Version 1)
Quarter: 2025Q1

REPORT INFORMATION
  Report Type: Spontaneous
  Country: US (occurrence: US)
  Receive Date: 20250202
  Receipt Date: 20250202
  Transmission Date: 20250409
  Serious: Yes (Hospitalization)
  Sender: AMGEN
  Company Number: US-AMGEN-USASP2025016055

PATIENT
  Age: 58 Year
  Sex: Male

DRUGS (10)
  1. PREDNISONE [Suspect]
     Active Substance: PREDNISONE
     Indication: Immunosuppressant drug therapy
     Dosage: 5 MILLIGRAM, QID
     Route: 065
     Dates: start: 201907
  2. IPILIMUMAB [Concomitant]
     Active Substance: IPILIMUMAB
     Indication: Immunosuppressant drug therapy
     Route: 065
     Dates: start: 201907
  3. NIVOLUMAB [Concomitant]
     Active Substance: NIVOLUMAB
     Indication: Immunosuppressant drug therapy
     Dates: start: 201907
  4. TACROLIMUS [Concomitant]
     Active Substance: TACROLIMUS
     Dosage: 0.5 MILLIGRAM, QID
     Route: 065
  5. SIROLIMUS [Concomitant]
     Active Substance: SIROLIMUS
     Dosage: 1 MILLIGRAM, QOD
     Route: 065
  6. MYCOPHENOLATE MOFETIL [Concomitant]
     Active Substance: MYCOPHENOLATE MOFETIL
     Dosage: 500 MILLIGRAM, BID
     Route: 065
  7. CARBOPLATIN [Concomitant]
     Active Substance: CARBOPLATIN
     Route: 065
     Dates: start: 201901
  8. CETUXIMAB [Concomitant]
     Active Substance: CETUXIMAB
     Route: 065
     Dates: start: 201901
  9. CEMIPLIMAB [Concomitant]
     Active Substance: CEMIPLIMAB
     Dosage: 350 MILLIGRAM, Q3WK
     Route: 040
  10. SIROLIMUS [Concomitant]
     Active Substance: SIROLIMUS
     Dosage: 1 MILLIGRAM, 3 TIMES/WK
     Route: 065

REACTIONS (2)
  - Rash [Recovering/Resolving]
  - Adverse event [Unknown]

NARRATIVE: CASE EVENT DATE: 20190901
